FAERS Safety Report 7833653-6 (Version None)
Quarter: 2011Q4

REPORT INFORMATION
  Report Type: 
  Country: None (occurrence: None)
  Receive Date: 20111024
  Receipt Date: 20111017
  Transmission Date: 20120403
  Serious: Yes (Death, Other)
  Sender: FDA-Public Use
  Company Number: US-BAYER-201041940NA

PATIENT
  Age: 76 Year
  Sex: Female
  Weight: 87.982 kg

DRUGS (16)
  1. TRASYLOL [Suspect]
     Dosage: 200 ML APROTININ PRIME
     Route: 042
  2. PREDNISONE [Concomitant]
     Dosage: 10 MG, QD
     Route: 048
  3. ZOCOR [Concomitant]
     Dosage: 40 MG, QD
     Route: 048
  4. ACETYLSALICYLIC ACID SRT [Concomitant]
     Dosage: 81 MG, QD
     Route: 048
  5. PLASMA [Concomitant]
  6. DYAZIDE [Concomitant]
     Dosage: 37.5/25CP DAILY
     Route: 048
  7. PRILOSEC [Concomitant]
     Dosage: 20 MG, UNK
     Route: 048
  8. HEPARIN [Concomitant]
  9. PLAQUENIL [Concomitant]
     Dosage: 200 MG, QD
     Route: 048
  10. DOBUTREX [Concomitant]
  11. RED BLOOD CELLS [Concomitant]
     Dosage: UNK
     Dates: start: 20061010
  12. NITROGLYCERIN [Concomitant]
  13. TRASYLOL [Suspect]
     Indication: CORONARY ARTERY BYPASS
     Dosage: APROTININ 3 - 200 ML VIALS
     Route: 042
     Dates: start: 20061010
  14. QUINAPRIL [Concomitant]
     Dosage: 20 MG, QD
     Route: 048
  15. ATENOLOL [Concomitant]
     Dosage: 25 MG, QD
     Route: 048
  16. FENTANYL [Concomitant]

REACTIONS (14)
  - RENAL IMPAIRMENT [None]
  - EMOTIONAL DISORDER [None]
  - MULTI-ORGAN FAILURE [None]
  - RENAL FAILURE [None]
  - STRESS [None]
  - RENAL DISORDER [None]
  - RENAL INJURY [None]
  - UNEVALUABLE EVENT [None]
  - PAIN [None]
  - ANXIETY [None]
  - FEAR [None]
  - INJURY [None]
  - DEATH [None]
  - MENTAL DISORDER [None]
